FAERS Safety Report 25338798 (Version 2)
Quarter: 2025Q2

REPORT INFORMATION
  Report Type: Report from Study
  Country: IT (occurrence: IT)
  Receive Date: 20250520
  Receipt Date: 20250522
  Transmission Date: 20250717
  Serious: No
  Sender: SANDOZ
  Company Number: IT-SANDOZ-SDZ2025IT034247

PATIENT
  Age: 24 Year
  Sex: Male
  Weight: 71 kg

DRUGS (1)
  1. OMNITROPE [Suspect]
     Active Substance: SOMATROPIN
     Indication: Growth hormone deficiency
     Route: 058

REACTIONS (3)
  - Drug dose omission by device [Unknown]
  - Device occlusion [Unknown]
  - Device issue [Unknown]

NARRATIVE: CASE EVENT DATE: 20250413
